FAERS Safety Report 14609459 (Version 2)
Quarter: 2018Q1

REPORT INFORMATION
  Report Type: Other
  Country: FR (occurrence: FR)
  Receive Date: 20180307
  Receipt Date: 20180329
  Transmission Date: 20180509
  Serious: Yes (Hospitalization)
  Sender: FDA-Public Use
  Company Number: FR-CELLTRION INC.-2017FR012457

PATIENT

DRUGS (6)
  1. REMSIMA [Suspect]
     Active Substance: INFLIXIMAB
     Dosage: 300 MG, UNK
     Route: 041
     Dates: start: 20170711, end: 20170711
  2. POLARAMINE [Concomitant]
     Active Substance: DEXCHLORPHENIRAMINE MALEATE
     Dosage: UNK
     Dates: start: 20170711
  3. IMUREL                             /00001501/ [Concomitant]
     Active Substance: AZATHIOPRINE SODIUM
  4. REMSIMA [Suspect]
     Active Substance: INFLIXIMAB
     Indication: CROHN^S DISEASE
     Dosage: 300 MG, UNK
     Route: 042
     Dates: start: 20170516, end: 20170516
  5. REMSIMA [Suspect]
     Active Substance: INFLIXIMAB
     Dosage: 300 MG, UNK
     Route: 042
     Dates: start: 20170905, end: 20170905
  6. BROMAZEPAM [Concomitant]
     Active Substance: BROMAZEPAM
     Dosage: 3 MG, UNK
     Dates: start: 20170711

REACTIONS (5)
  - Hot flush [Recovered/Resolved]
  - Anxiety [Recovered/Resolved]
  - Hypertension [Recovered/Resolved]
  - Inappropriate schedule of drug administration [Unknown]
  - Malaise [Recovered/Resolved]

NARRATIVE: CASE EVENT DATE: 20170711
